FAERS Safety Report 13614690 (Version 1)
Quarter: 2017Q2

REPORT INFORMATION
  Report Type: Spontaneous
  Country: US (occurrence: US)
  Receive Date: 20170606
  Receipt Date: 20170606
  Transmission Date: 20170830
  Serious: Yes (Hospitalization)
  Sender: FDA-Public Use
  Company Number: US-STANDARD HOMEOPATHIC COMPANY-2021593

PATIENT
  Age: 66 Year
  Sex: Male

DRUGS (3)
  1. HYLANDS EARACHE DROPS [Suspect]
     Active Substance: HOMEOPATHICS
     Indication: PYREXIA
     Dates: start: 20170520, end: 20170520
  2. HYLANDS EARACHE DROPS [Suspect]
     Active Substance: HOMEOPATHICS
     Indication: EAR PAIN
     Dates: start: 20170520, end: 20170520
  3. HYLANDS EARACHE DROPS [Suspect]
     Active Substance: HOMEOPATHICS
     Indication: PAIN
     Dates: start: 20170520, end: 20170520

REACTIONS (5)
  - Eye pain [Not Recovered/Not Resolved]
  - Incorrect route of drug administration [None]
  - Eyelid disorder [None]
  - Facial pain [None]
  - Diplopia [Not Recovered/Not Resolved]

NARRATIVE: CASE EVENT DATE: 20170521
